FAERS Safety Report 10064749 (Version 2)
Quarter: 2014Q2

REPORT INFORMATION
  Report Type: Report from Study
  Country: CA (occurrence: CA)
  Receive Date: 20140408
  Receipt Date: 20140605
  Transmission Date: 20141212
  Serious: Yes (Hospitalization, Other)
  Sender: FDA-Public Use
  Company Number: CA-JNJFOC-20140402288

PATIENT
  Age: 40 Year
  Sex: Female
  Weight: 63 kg

DRUGS (4)
  1. REMICADE [Suspect]
     Indication: COLITIS ULCERATIVE
     Route: 042
     Dates: start: 20140528
  2. REMICADE [Suspect]
     Indication: COLITIS ULCERATIVE
     Route: 042
     Dates: start: 20090528
  3. IMURAN [Concomitant]
     Route: 065
  4. VALPROIC ACID [Concomitant]
     Route: 065

REACTIONS (3)
  - Ovarian cyst [Recovered/Resolved]
  - Intra-uterine contraceptive device removal [Unknown]
  - Herpes zoster [Not Recovered/Not Resolved]
